FAERS Safety Report 7141543-X (Version None)
Quarter: 2010Q4

REPORT INFORMATION
  Report Type: 
  Country: None (occurrence: None)
  Receive Date: 20101207
  Receipt Date: 20101123
  Transmission Date: 20110411
  Serious: Yes (Other)
  Sender: FDA-Public Use
  Company Number: PHFR2010GB04570

PATIENT
  Sex: Male

DRUGS (4)
  1. CLOZARIL [Suspect]
     Indication: SCHIZOPHRENIA
     Dosage: 250 MG, UNK
     Route: 048
     Dates: start: 20100923
  2. CLOZARIL [Suspect]
     Dosage: 500 MG DAILY
     Route: 048
     Dates: start: 20100925
  3. VALPROATE SODIUM [Concomitant]
     Indication: AFFECTIVE DISORDER
     Dosage: 1000MG, UNK
     Route: 048
  4. CLOPIXOL                           /00876701/ [Concomitant]
     Indication: SCHIZOPHRENIA
     Dosage: 20MG, UNK
     Route: 048
     Dates: start: 20100809

REACTIONS (3)
  - BLOOD SODIUM DECREASED [None]
  - POLYDIPSIA [None]
  - WATER INTOXICATION [None]
